FAERS Safety Report 21448136 (Version 1)
Quarter: 2022Q4

REPORT INFORMATION
  Report Type: Spontaneous
  Country: US (occurrence: None)
  Receive Date: 20221011
  Receipt Date: 20221011
  Transmission Date: 20230113
  Serious: No
  Sender: FDA-Public Use
  Company Number: None

PATIENT
  Sex: Male

DRUGS (1)
  1. INBRIJA [Suspect]
     Active Substance: LEVODOPA
     Indication: Parkinson^s disease
     Dosage: OTHER FREQUENCY : PRN UP TO 5X D;?
     Route: 055
     Dates: start: 20211123

REACTIONS (2)
  - Rhinorrhoea [None]
  - Lacrimation increased [None]
